FAERS Safety Report 5280962-3 (Version None)
Quarter: 2007Q1

REPORT INFORMATION
  Report Type: 
  Country: None (occurrence: None)
  Receive Date: 20061229
  Receipt Date: 20060922
  Transmission Date: 20070707
  Serious: Yes (Other)
  Sender: FDA-Public Use
  Company Number: 2006UW18581

PATIENT
  Sex: Male

DRUGS (5)
  1. CRESTOR [Suspect]
     Indication: BLOOD CHOLESTEROL INCREASED
     Dosage: 10 MG PO
     Route: 048
     Dates: start: 20060801
  2. NIASPAN [Concomitant]
  3. FISH OIL [Concomitant]
  4. PROZAC [Concomitant]
  5. ASPIRIN [Concomitant]

REACTIONS (1)
  - MYDRIASIS [None]
